FAERS Safety Report 10101914 (Version 2)
Quarter: 2014Q2

REPORT INFORMATION
  Report Type: Spontaneous
  Country: US (occurrence: US)
  Receive Date: 20140424
  Receipt Date: 20140424
  Transmission Date: 20141212
  Serious: No
  Sender: FDA-Public Use
  Company Number: US-009507513-1401USA009308

PATIENT
  Sex: Female

DRUGS (1)
  1. DR. SCHOLLS EXTRA THICK CALLUS REMOVERS [Suspect]
     Indication: HYPERKERATOSIS

REACTIONS (2)
  - Wound [Not Recovered/Not Resolved]
  - Drug administration error [Unknown]
